FAERS Safety Report 6832915-9 (Version None)
Quarter: 2010Q3

REPORT INFORMATION
  Report Type: 
  Country: None (occurrence: None)
  Receive Date: 20100712
  Receipt Date: 20070317
  Transmission Date: 20110219
  Serious: No
  Sender: FDA-Public Use
  Company Number: US-PFIZER INC-2007022987

PATIENT
  Sex: Male
  Weight: 92.08 kg

DRUGS (12)
  1. CHANTIX [Suspect]
     Indication: SMOKING CESSATION THERAPY
     Route: 048
     Dates: start: 20070313
  2. HYDROCHLOROTHIAZIDE [Concomitant]
     Indication: HYPERTENSION
  3. GLUCOTROL [Concomitant]
     Indication: DIABETES MELLITUS
  4. AVANDIA [Concomitant]
     Indication: DIABETES MELLITUS
  5. COMBIVENT [Concomitant]
     Indication: ASTHMA
     Route: 055
  6. PRINIVIL [Concomitant]
     Indication: HYPERTENSION
  7. LIPITOR [Concomitant]
     Indication: BLOOD CHOLESTEROL INCREASED
  8. ACETYLSALICYLIC ACID [Concomitant]
     Indication: CARDIOVASCULAR EVENT PROPHYLAXIS
  9. NEURONTIN [Concomitant]
     Indication: INTERVERTEBRAL DISC DISORDER
  10. NEXIUM [Concomitant]
     Indication: GASTRIC DISORDER
  11. ADVAIR DISKUS 100/50 [Concomitant]
     Indication: ASTHMA
     Route: 055
  12. CELEBREX [Concomitant]
     Indication: INTERVERTEBRAL DISC DISORDER

REACTIONS (6)
  - ABNORMAL DREAMS [None]
  - CONSTIPATION [None]
  - FEELING COLD [None]
  - FLATULENCE [None]
  - MEMORY IMPAIRMENT [None]
  - SLEEP DISORDER [None]
